FAERS Safety Report 23048721 (Version 4)
Quarter: 2024Q2

REPORT INFORMATION
  Report Type: Report from Study
  Country: BR (occurrence: BR)
  Receive Date: 20231010
  Receipt Date: 20240415
  Transmission Date: 20240716
  Serious: Yes (Other)
  Sender: FDA-Public Use
  Company Number: BR-002147023-NVSC2023BR188843

PATIENT
  Sex: Female

DRUGS (2)
  1. KISQALI [Suspect]
     Active Substance: RIBOCICLIB
     Indication: Breast cancer
     Dosage: 3 DOSAGE FORM, QD
     Route: 065
     Dates: end: 20240314
  2. FASLODEX [Suspect]
     Active Substance: FULVESTRANT
     Indication: Product used for unknown indication
     Dosage: 2 INJECTIONS OF FASLODEX EVERY MONTH
     Route: 065

REACTIONS (16)
  - Diabetes mellitus [Unknown]
  - Dysgeusia [Recovering/Resolving]
  - Constipation [Recovered/Resolved]
  - Dizziness [Unknown]
  - Hypertension [Unknown]
  - Dysarthria [Unknown]
  - Dysgeusia [Not Recovered/Not Resolved]
  - Pain [Unknown]
  - Hypogeusia [Not Recovered/Not Resolved]
  - Scar [Unknown]
  - Sluggishness [Unknown]
  - Gait inability [Unknown]
  - Abdominal mass [Unknown]
  - Aphasia [Recovered/Resolved]
  - Feeding disorder [Unknown]
  - Rash macular [Unknown]
